FAERS Safety Report 11424857 (Version 3)
Quarter: 2015Q3

REPORT INFORMATION
  Report Type: Spontaneous
  Country: US (occurrence: US)
  Receive Date: 20150821
  Receipt Date: 20150903
  Transmission Date: 20151125
  Serious: No
  Sender: FDA-Public Use
  Company Number: US-ELI_LILLY_AND_COMPANY-US201004001328

PATIENT
  Age: 58 Year
  Sex: Male

DRUGS (3)
  1. HUMALOG [Suspect]
     Active Substance: INSULIN LISPRO
     Indication: DIABETES MELLITUS
     Dosage: UNK, UNK
  2. HUMALOG [Suspect]
     Active Substance: INSULIN LISPRO
  3. HUMULIN N [Suspect]
     Active Substance: INSULIN HUMAN
     Indication: DIABETES MELLITUS

REACTIONS (8)
  - Constipation [Unknown]
  - Road traffic accident [Unknown]
  - Neck injury [Unknown]
  - Carpal tunnel syndrome [Unknown]
  - Blood glucose increased [Not Recovered/Not Resolved]
  - Drug ineffective [Not Recovered/Not Resolved]
  - Arthralgia [Unknown]
  - Pollakiuria [Unknown]

NARRATIVE: CASE EVENT DATE: 20100329
